FAERS Safety Report 9427434 (Version 1)
Quarter: 2013Q3

REPORT INFORMATION
  Report Type: Report from Study
  Country: US (occurrence: US)
  Receive Date: 20130730
  Receipt Date: 20130730
  Transmission Date: 20140515
  Serious: No
  Sender: FDA-Public Use
  Company Number: US-ABBOTT-12P-163-1005384-00

PATIENT
  Sex: Male
  Weight: 122.58 kg

DRUGS (8)
  1. NIASPAN (COATED) [Suspect]
     Indication: BLOOD CHOLESTEROL INCREASED
     Dosage: AT BEDTIME
     Dates: start: 200911
  2. DIOVAN [Concomitant]
     Indication: PRODUCT USED FOR UNKNOWN INDICATION
  3. ASA [Concomitant]
     Indication: PRODUCT USED FOR UNKNOWN INDICATION
  4. JANUVIA [Concomitant]
     Indication: PRODUCT USED FOR UNKNOWN INDICATION
  5. METFORMIN [Concomitant]
     Indication: PRODUCT USED FOR UNKNOWN INDICATION
  6. LYRICA [Concomitant]
     Indication: PRODUCT USED FOR UNKNOWN INDICATION
  7. ZYRTEC [Concomitant]
     Indication: PRODUCT USED FOR UNKNOWN INDICATION
  8. VIT D [Concomitant]
     Indication: PRODUCT USED FOR UNKNOWN INDICATION

REACTIONS (3)
  - Abdominal discomfort [Recovered/Resolved]
  - Dyspepsia [Recovered/Resolved]
  - Gastric ulcer [Recovered/Resolved]
